FAERS Safety Report 8115817-X (Version None)
Quarter: 2012Q1

REPORT INFORMATION
  Report Type: 
  Country: None (occurrence: None)
  Receive Date: 20120206
  Receipt Date: 20120124
  Transmission Date: 20120608
  Serious: Yes (Hospitalization)
  Sender: FDA-Public Use
  Company Number: DE-ELI_LILLY_AND_COMPANY-DE201201007144

PATIENT
  Age: 75 Year
  Sex: Female

DRUGS (6)
  1. FORTEO [Suspect]
     Dosage: UNK, QD
     Route: 058
     Dates: start: 20120101
  2. FORTEO [Suspect]
     Indication: OSTEOPOROSIS
     Dosage: UNK, QD
     Route: 058
     Dates: start: 20110726
  3. CALCIUM W/VITAMIN D NOS [Concomitant]
  4. ANALGESICS [Concomitant]
  5. FORTEO [Suspect]
     Dosage: UNK, OTHER
     Route: 058
  6. ANTIINFLAMMATORY/ANTIRHEUMATIC PRODUCTS [Concomitant]
     Indication: MUSCULOSKELETAL PAIN

REACTIONS (2)
  - BLOOD TEST ABNORMAL [None]
  - BURSITIS [None]
